FAERS Safety Report 4991547-8 (Version None)
Quarter: 2006Q2

REPORT INFORMATION
  Report Type: 
  Country: None (occurrence: None)
  Receive Date: 20060502
  Receipt Date: 20060421
  Transmission Date: 20061013
  Serious: Yes (Hospitalization, Other)
  Sender: FDA-Public Use
  Company Number: 2005116979

PATIENT
  Age: 14 Year
  Sex: Male

DRUGS (2)
  1. ZOLOFT [Suspect]
     Indication: ILL-DEFINED DISORDER
     Dosage: 2 IN 1 D, ORAL
     Route: 048
     Dates: start: 20000401
  2. DEPAKOTE [Concomitant]

REACTIONS (16)
  - AGGRESSION [None]
  - AGITATION [None]
  - AKATHISIA [None]
  - GUN SHOT WOUND [None]
  - HEAD INJURY [None]
  - HOSTILITY [None]
  - INTENTIONAL SELF-INJURY [None]
  - LACERATION [None]
  - MAJOR DEPRESSION [None]
  - PERSONALITY CHANGE [None]
  - PSYCHIATRIC SYMPTOM [None]
  - SELF MUTILATION [None]
  - SOCIAL AVOIDANT BEHAVIOUR [None]
  - SOMNOLENCE [None]
  - SUICIDAL IDEATION [None]
  - SUICIDE ATTEMPT [None]
